FAERS Safety Report 4799814-8 (Version None)
Quarter: 2005Q4

REPORT INFORMATION
  Report Type: 
  Country: None (occurrence: None)
  Receive Date: 20051013
  Receipt Date: 20050930
  Transmission Date: 20060501
  Serious: Yes (Other)
  Sender: FDA-Public Use
  Company Number: 27592

PATIENT
  Age: 72 Year
  Sex: Female

DRUGS (2)
  1. FLECAINIDE ACETATE [Suspect]
     Indication: ATRIAL FIBRILLATION
     Dosage: 200 MG , ORAL
     Route: 048
     Dates: start: 20010307, end: 20040115
  2. ATENOLOL [Concomitant]

REACTIONS (5)
  - ATRIAL FIBRILLATION [None]
  - DISEASE RECURRENCE [None]
  - INSOMNIA [None]
  - RESTLESSNESS [None]
  - TACHYARRHYTHMIA [None]
